FAERS Safety Report 12921383 (Version 1)
Quarter: 2016Q4

REPORT INFORMATION
  Report Type: Spontaneous
  Country: BR (occurrence: BR)
  Receive Date: 20161108
  Receipt Date: 20161108
  Transmission Date: 20170207
  Serious: Yes (Hospitalization, Other)
  Sender: FDA-Public Use
  Company Number: BR-009507513-1611BRA001496

PATIENT
  Age: 70 Year
  Sex: Female

DRUGS (1)
  1. VYTORIN [Suspect]
     Active Substance: EZETIMIBE\SIMVASTATIN
     Route: 048

REACTIONS (3)
  - Fall [Unknown]
  - Blood creatine phosphokinase abnormal [Unknown]
  - Abasia [Unknown]
